FAERS Safety Report 6204646-X (Version None)
Quarter: 2009Q2

REPORT INFORMATION
  Report Type: 
  Country: None (occurrence: None)
  Receive Date: 20090527
  Receipt Date: 20090518
  Transmission Date: 20091009
  Serious: Yes (Other)
  Sender: FDA-Public Use
  Company Number: ES-AMGEN-US340859

PATIENT
  Age: 60 Year
  Sex: Female

DRUGS (3)
  1. ENBREL [Suspect]
     Indication: DRUG USE FOR UNKNOWN INDICATION
     Route: 058
     Dates: start: 20090304
  2. ORFIDAL [Concomitant]
     Dosage: UNKNOWN
     Route: 048
  3. ASPIRIN [Concomitant]
     Route: 048

REACTIONS (8)
  - CONDITION AGGRAVATED [None]
  - COUGH [None]
  - ERYTHEMA [None]
  - FATIGUE [None]
  - HEADACHE [None]
  - HYPERTENSION [None]
  - PRURITUS [None]
  - RESPIRATORY FAILURE [None]
